FAERS Safety Report 17818654 (Version 1)
Quarter: 2020Q2

REPORT INFORMATION
  Report Type: Spontaneous
  Country: FI (occurrence: FI)
  Receive Date: 20200522
  Receipt Date: 20200522
  Transmission Date: 20200714
  Serious: Yes (Hospitalization)
  Sender: FDA-Public Use
  Company Number: FI-PFIZER INC-2020204224

PATIENT
  Age: 42 Year
  Sex: Female

DRUGS (4)
  1. XELJANZ [Suspect]
     Active Substance: TOFACITINIB CITRATE
     Indication: RHEUMATOID ARTHRITIS
     Dosage: 10 MG, DAILY
     Route: 048
     Dates: start: 201906, end: 20200323
  2. METHOTREXATE PFIZER [METHOTREXATE] [Concomitant]
     Active Substance: METHOTREXATE
     Indication: RHEUMATOID ARTHRITIS
     Dosage: 25 MG, WEEKLY
     Route: 058
     Dates: start: 2008
  3. SALAZOPYRIN EN [Concomitant]
     Active Substance: SULFASALAZINE
     Dosage: 2 G, DAILY
     Route: 048
     Dates: start: 2008, end: 20200323
  4. FIASP [Concomitant]
     Active Substance: INSULIN ASPART
     Indication: TYPE 1 DIABETES MELLITUS
     Dosage: UNK
     Route: 058

REACTIONS (7)
  - Epstein-Barr virus infection reactivation [Recovering/Resolving]
  - Pyrexia [Recovering/Resolving]
  - Headache [Recovering/Resolving]
  - Hepatic enzyme increased [Recovering/Resolving]
  - Cytomegalovirus infection reactivation [Recovering/Resolving]
  - C-reactive protein increased [Recovering/Resolving]
  - Herpes simplex reactivation [Recovering/Resolving]

NARRATIVE: CASE EVENT DATE: 20200320
